FAERS Safety Report 9631356 (Version 1)
Quarter: 2013Q4

REPORT INFORMATION
  Report Type: Spontaneous
  Country: FR (occurrence: None)
  Receive Date: 20131011
  Receipt Date: 20131011
  Transmission Date: 20140711
  Serious: Yes (Death, Hospitalization)
  Sender: FDA-Public Use
  Company Number: AUR-APL-2013-08327

PATIENT
  Age: 86 Year
  Sex: Female

DRUGS (7)
  1. RAMIPRIL (RAMIPRIL) [Suspect]
     Indication: PRODUCT USED FOR UNKNOWN INDICATION
     Route: 048
     Dates: end: 20130613
  2. REPAGLINIDE (REPAGLINIDE) [Suspect]
     Indication: DIABETES MELLITUS
     Dosage: 4 MG (2 MG, 2, IN 1 D), ORAL
     Route: 048
     Dates: end: 20130601
  3. LANTUS (INSULIN GLARGINE) [Suspect]
     Indication: DIABETES MELLITUS
     Route: 058
     Dates: end: 20130601
  4. AMLOR (AMLODIPINE BESILATE) [Concomitant]
  5. KARDEGIC (ACETYLSALICYLATE LYSINE) [Concomitant]
  6. ESOMEPRAZOLE (ESOMEPRAZOLE) [Concomitant]
  7. FUROSEMIDE (FUROSEMIDE) [Concomitant]

REACTIONS (9)
  - Coma [None]
  - Hypoglycaemia [None]
  - Renal failure [None]
  - Anaemia [None]
  - Thrombocytopenia [None]
  - Refusal of treatment by patient [None]
  - Cerebral ischaemia [None]
  - Cervical vertebral fracture [None]
  - Bronchopneumonia [None]
